FAERS Safety Report 7294363-X (Version None)
Quarter: 2011Q1

REPORT INFORMATION
  Report Type: 
  Country: None (occurrence: None)
  Receive Date: 20110215
  Receipt Date: 20110203
  Transmission Date: 20110831
  Serious: Yes (Life-Threatening)
  Sender: FDA-Public Use
  Company Number: JP-AMGEN-JPNCT2011001534

PATIENT
  Age: 39 Year
  Sex: Male
  Weight: 69 kg

DRUGS (14)
  1. NEOPAREN 2 [Concomitant]
     Dosage: UNK
     Route: 042
  2. HIRUDOID                           /00723702/ [Concomitant]
     Dosage: UNK
     Route: 062
  3. MORPHINE HYDROCHLORIDE [Concomitant]
     Dosage: UNK
     Route: 042
  4. SOLDEM 3A [Concomitant]
     Dosage: UNK
     Route: 042
  5. TAKEPRON [Concomitant]
     Dosage: UNK
     Route: 048
  6. RINDERON-VG [Concomitant]
     Dosage: UNK
     Route: 062
  7. DUROTEP [Concomitant]
     Dosage: UNK
     Route: 062
  8. ENSURE                             /00472201/ [Concomitant]
     Dosage: UNK
     Route: 048
  9. PANITUMUMAB [Suspect]
     Indication: COLORECTAL CANCER
     Dosage: 6 MG/KG, Q2WK
     Route: 041
     Dates: start: 20100901, end: 20101013
  10. MYSER                              /01249201/ [Concomitant]
     Dosage: UNK
     Route: 062
  11. LOCOID                             /00028605/ [Concomitant]
     Dosage: UNK
     Route: 062
  12. MINOMYCIN [Concomitant]
     Dosage: UNK
     Route: 048
  13. KERATINAMIN [Concomitant]
     Dosage: UNK
     Route: 062
  14. ZOSYN [Concomitant]
     Dosage: UNK
     Route: 042

REACTIONS (4)
  - ILEAL FISTULA [None]
  - ILEAL PERFORATION [None]
  - DERMATITIS ACNEIFORM [None]
  - DRY SKIN [None]
